FAERS Safety Report 13899240 (Version 1)
Quarter: 2017Q3

REPORT INFORMATION
  Report Type: Spontaneous
  Country: US (occurrence: US)
  Receive Date: 20170824
  Receipt Date: 20170824
  Transmission Date: 20171127
  Serious: Yes (Other)
  Sender: FDA-Public Use
  Company Number: US-PFIZER INC-2017361224

PATIENT
  Age: 66 Year
  Sex: Male
  Weight: 64.4 kg

DRUGS (5)
  1. XANAX [Suspect]
     Active Substance: ALPRAZOLAM
     Dosage: 0.5 MG, 3X/DAY
  2. OXAZEPAM. [Suspect]
     Active Substance: OXAZEPAM
     Indication: PALPITATIONS
     Dosage: 15MG, 3X/DAY (8AM, 3PM AND 10PM)
     Dates: start: 201707, end: 20170815
  3. XANAX [Suspect]
     Active Substance: ALPRAZOLAM
     Dosage: 0.5 MG, 2X/DAY
  4. XANAX [Suspect]
     Active Substance: ALPRAZOLAM
     Dosage: 0.25 MG, 4X/DAY
  5. XANAX [Suspect]
     Active Substance: ALPRAZOLAM
     Dosage: 0.5MG 3-4 TIMES A DAY

REACTIONS (16)
  - Weight decreased [Unknown]
  - Decreased appetite [Not Recovered/Not Resolved]
  - Fatigue [Unknown]
  - Emotional disorder [Unknown]
  - Dysgeusia [Not Recovered/Not Resolved]
  - Anxiety [Unknown]
  - Irritability [Unknown]
  - Amnesia [Recovering/Resolving]
  - Panic attack [Unknown]
  - Tremor [Unknown]
  - Dizziness [Recovered/Resolved]
  - Hypoglycaemia [Unknown]
  - Presyncope [Not Recovered/Not Resolved]
  - Myalgia [Not Recovered/Not Resolved]
  - Nervousness [Not Recovered/Not Resolved]
  - Hunger [Not Recovered/Not Resolved]

NARRATIVE: CASE EVENT DATE: 20170731
